FAERS Safety Report 25850248 (Version 2)
Quarter: 2025Q4

REPORT INFORMATION
  Report Type: Spontaneous
  Country: GB (occurrence: GB)
  Receive Date: 20250926
  Receipt Date: 20251009
  Transmission Date: 20260117
  Serious: Yes (Hospitalization, Other)
  Sender: ALKEM
  Company Number: None

PATIENT
  Sex: Female

DRUGS (19)
  1. PREGABALIN [Suspect]
     Active Substance: PREGABALIN
     Indication: Product used for unknown indication
     Dosage: UNK
     Route: 065
  2. DULOXETINE HYDROCHLORIDE [Suspect]
     Active Substance: DULOXETINE HYDROCHLORIDE
     Indication: Product used for unknown indication
     Dosage: UNK
     Route: 065
  3. ASPIRIN [Suspect]
     Active Substance: ASPIRIN
     Indication: Product used for unknown indication
     Dosage: UNK
     Route: 065
  4. BUTYLSCOPOLAMINE BROMIDE [Suspect]
     Active Substance: BUTYLSCOPOLAMINE BROMIDE
     Indication: Product used for unknown indication
     Dosage: UNK
     Route: 065
  5. COCODAMOL [Suspect]
     Active Substance: ACETAMINOPHEN\CODEINE PHOSPHATE
     Indication: Product used for unknown indication
     Dosage: UNK
     Route: 065
  6. TRAMADOL HYDROCHLORIDE [Suspect]
     Active Substance: TRAMADOL HYDROCHLORIDE
     Indication: Product used for unknown indication
     Dosage: UNK
     Route: 065
  7. NAPROXEN [Suspect]
     Active Substance: NAPROXEN
     Indication: Irritable bowel syndrome
     Dosage: UNK
     Route: 065
  8. SENNA LEAF [Suspect]
     Active Substance: SENNA LEAF
     Indication: Hypermobility syndrome
     Dosage: UNK
     Route: 065
  9. SENNA LEAF [Suspect]
     Active Substance: SENNA LEAF
     Indication: Fibromyalgia
  10. SENNA LEAF [Suspect]
     Active Substance: SENNA LEAF
     Indication: Intervertebral disc degeneration
  11. SENNA LEAF [Suspect]
     Active Substance: SENNA LEAF
     Indication: Neuropathy peripheral
  12. SENNA LEAF [Suspect]
     Active Substance: SENNA LEAF
     Indication: Hemiplegic migraine
  13. SENNA LEAF [Suspect]
     Active Substance: SENNA LEAF
     Indication: Endometriosis
  14. SENNA LEAF [Suspect]
     Active Substance: SENNA LEAF
     Indication: Irritable bowel syndrome
  15. SENNA LEAF [Suspect]
     Active Substance: SENNA LEAF
     Indication: Arthralgia
  16. SENNA LEAF [Suspect]
     Active Substance: SENNA LEAF
     Indication: Spinal osteoarthritis
  17. SENNA LEAF [Suspect]
     Active Substance: SENNA LEAF
     Indication: Hyperparathyroidism
  18. SENNA LEAF [Suspect]
     Active Substance: SENNA LEAF
     Indication: Hernia
  19. TRAMADOL [Suspect]
     Active Substance: TRAMADOL
     Indication: Product used for unknown indication
     Dosage: UNK
     Route: 065

REACTIONS (8)
  - Post-traumatic stress disorder [Unknown]
  - Lung disorder [Unknown]
  - Asthma [Unknown]
  - Pneumonia [Unknown]
  - Rash [Unknown]
  - Constipation [Unknown]
  - Diarrhoea [Unknown]
  - Irritable bowel syndrome [Unknown]
